FAERS Safety Report 25875729 (Version 2)
Quarter: 2025Q4

REPORT INFORMATION
  Report Type: Spontaneous
  Country: CN (occurrence: CN)
  Receive Date: 20251003
  Receipt Date: 20251024
  Transmission Date: 20260117
  Serious: Yes (Hospitalization, Other)
  Sender: ORGANON
  Company Number: CN-ORGANON-O2509CHN001641

PATIENT
  Age: 17 Year
  Sex: Male

DRUGS (6)
  1. DIPROSPAN [Suspect]
     Active Substance: BETAMETHASONE DIPROPIONATE\BETAMETHASONE SODIUM PHOSPHATE
     Indication: Swelling face
     Dosage: 1ML, ONCE, INTRAMUSCULAR INJECTION
     Dates: start: 20250211, end: 20250211
  2. DIPROSPAN [Suspect]
     Active Substance: BETAMETHASONE DIPROPIONATE\BETAMETHASONE SODIUM PHOSPHATE
     Indication: Pruritus
  3. PREDNISONE ACETATE [Suspect]
     Active Substance: PREDNISONE ACETATE
     Indication: Swelling face
     Dosage: 20 MILLIGRAM, QD
  4. PREDNISONE ACETATE [Suspect]
     Active Substance: PREDNISONE ACETATE
     Indication: Pruritus
  5. MIZOLASTINE [Suspect]
     Active Substance: MIZOLASTINE
     Indication: Swelling face
     Dosage: UNK
  6. MIZOLASTINE [Suspect]
     Active Substance: MIZOLASTINE
     Indication: Pruritus

REACTIONS (9)
  - Anaphylactic shock [Recovered/Resolved]
  - Syncope [Recovered/Resolved]
  - Swelling face [Recovered/Resolved]
  - Feeling cold [Recovered/Resolved]
  - Cyanosis [Recovered/Resolved]
  - Urinary incontinence [Recovered/Resolved]
  - Anal incontinence [Recovered/Resolved]
  - Dysphoria [Recovered/Resolved]
  - Product use in unapproved indication [Unknown]

NARRATIVE: CASE EVENT DATE: 20250211
